FAERS Safety Report 10962928 (Version 1)
Quarter: 2015Q1

REPORT INFORMATION
  Report Type: Spontaneous
  Country: CH (occurrence: CH)
  Receive Date: 20150327
  Receipt Date: 20150327
  Transmission Date: 20150721
  Serious: Yes (Hospitalization, Other)
  Sender: FDA-Public Use
  Company Number: CH-PFIZER INC-2015105331

PATIENT
  Age: 71 Year
  Sex: Male

DRUGS (8)
  1. KALIUM [Concomitant]
     Active Substance: POTASSIUM CHLORIDE
  2. ALDACTONE [Suspect]
     Active Substance: SPIRONOLACTONE
     Dosage: 100 MG, 1X/DAY
     Route: 048
     Dates: end: 201501
  3. DUPHALAC [Concomitant]
     Active Substance: LACTULOSE
  4. NEOCITRAN /00908001/ [Suspect]
     Active Substance: ACETAMINOPHEN\PSEUDOEPHEDRINE HYDROCHLORIDE
     Dates: end: 201501
  5. ROCEPHIN [Suspect]
     Active Substance: CEFTRIAXONE SODIUM
     Indication: PERITONITIS BACTERIAL
     Dates: start: 201501, end: 20150123
  6. KONAKION [Concomitant]
     Active Substance: PHYTONADIONE
  7. TORASEMIDE [Suspect]
     Active Substance: TORSEMIDE
     Dosage: 10 MG, 1X/DAY
     Route: 048
     Dates: end: 201501
  8. PANTOPRAZOLE [Concomitant]
     Active Substance: PANTOPRAZOLE SODIUM

REACTIONS (6)
  - Ascites [Recovering/Resolving]
  - Jaundice [Recovering/Resolving]
  - Drug-induced liver injury [Recovering/Resolving]
  - Hepatorenal syndrome [Recovering/Resolving]
  - Hypoalbuminaemia [Recovering/Resolving]
  - Hepatic cirrhosis [Recovering/Resolving]

NARRATIVE: CASE EVENT DATE: 201501
